FAERS Safety Report 12571083 (Version 2)
Quarter: 2016Q3

REPORT INFORMATION
  Report Type: Spontaneous
  Country: US (occurrence: US)
  Receive Date: 20160719
  Receipt Date: 20160725
  Transmission Date: 20161109
  Serious: Yes (Other)
  Sender: FDA-Public Use
  Company Number: US-HORIZON-BUP-0079-2016

PATIENT
  Age: 52 Year
  Sex: Male

DRUGS (1)
  1. BUPHENYL [Suspect]
     Active Substance: SODIUM PHENYLBUTYRATE
     Indication: UREA CYCLE ENZYME DEFICIENCY
     Dosage: 40 TABLETS DIVIDED INTO THREE TIMES A DAY

REACTIONS (2)
  - Blood pressure increased [Recovered/Resolved]
  - Dyspepsia [Recovered/Resolved]
